FAERS Safety Report 6187515-3 (Version None)
Quarter: 2009Q2

REPORT INFORMATION
  Report Type: 
  Country: None (occurrence: None)
  Receive Date: 20090508
  Receipt Date: 20090428
  Transmission Date: 20091009
  Serious: Yes (Hospitalization)
  Sender: FDA-Public Use
  Company Number: 2009SP009282

PATIENT
  Age: 75 Year
  Sex: Male
  Weight: 70 kg

DRUGS (10)
  1. TEMODAL [Suspect]
     Indication: GLIOBLASTOMA
     Dosage: ; PO
     Route: 048
  2. DIOVAN [Concomitant]
  3. NORVASC [Concomitant]
  4. ALNA [Concomitant]
  5. TORSEMIDE [Concomitant]
  6. DILATREND [Concomitant]
  7. MELNEURIN [Concomitant]
  8. REMERGIL [Concomitant]
  9. KEPPRA [Concomitant]
  10. GRANISETRON HCL [Concomitant]

REACTIONS (3)
  - C-REACTIVE PROTEIN INCREASED [None]
  - DYSPNOEA [None]
  - PRODUCTIVE COUGH [None]
